FAERS Safety Report 8625050-0 (Version None)
Quarter: 2012Q3

REPORT INFORMATION
  Report Type: 
  Country: None (occurrence: None)
  Receive Date: 20120827
  Receipt Date: 20120820
  Transmission Date: 20120928
  Serious: Yes (Death, Hospitalization)
  Sender: FDA-Public Use
  Company Number: JP-009507513-1108USA01624

PATIENT

DRUGS (6)
  1. KALETRA [Suspect]
     Dosage: DIVIDED DOSE FREQUENCY UNKNOWN
     Route: 048
     Dates: start: 20040831, end: 20060921
  2. KALETRA [Suspect]
     Dosage: DIVIDED DOSE FREQUENCY UNKNOWN
     Route: 048
     Dates: start: 20061026, end: 20110707
  3. INVIRASE [Suspect]
     Indication: HIV INFECTION
     Dosage: DIVIDED DOSE REQUENCY U
     Route: 048
     Dates: start: 20061026
  4. KALETRA [Suspect]
     Indication: HIV INFECTION
     Dosage: DIVIDED DOSE FREQUENCY UNKNOWN
     Route: 048
     Dates: start: 20020903, end: 20040804
  5. HALCION [Concomitant]
     Indication: INSOMNIA
     Dosage: 0.25 MG, QD
     Route: 048
     Dates: end: 20100823
  6. ISENTRESS [Suspect]
     Indication: HIV INFECTION
     Dosage: DIVIDED DOSE FREQUENCY UNKNOWN
     Route: 048
     Dates: start: 20080731, end: 20110807

REACTIONS (2)
  - HEPATIC FUNCTION ABNORMAL [None]
  - CARDIAC FAILURE [None]
